FAERS Safety Report 25595125 (Version 1)
Quarter: 2025Q3

REPORT INFORMATION
  Report Type: Report from Study
  Country: US (occurrence: US)
  Receive Date: 20250723
  Receipt Date: 20250723
  Transmission Date: 20251020
  Serious: Yes (Other)
  Sender: ALEXION PHARMACEUTICALS
  Company Number: US-ASTRAZENECA-202505USA029566US

PATIENT
  Age: 54 Year
  Sex: Female

DRUGS (1)
  1. STRENSIQ [Suspect]
     Active Substance: ASFOTASE ALFA
     Indication: Phosphorus metabolism disorder
     Dosage: 160 MILLIGRAM, TIW
     Route: 065

REACTIONS (12)
  - Apnoea [Unknown]
  - Arthralgia [Unknown]
  - Nasal congestion [Unknown]
  - Fatigue [Unknown]
  - Myalgia [Unknown]
  - Hypoaesthesia [Unknown]
  - Rash [Unknown]
  - Tooth disorder [Unknown]
  - Palpitations [Unknown]
  - Hypersensitivity [Unknown]
  - Glycosylated haemoglobin increased [Unknown]
  - Low density lipoprotein increased [Unknown]

NARRATIVE: CASE EVENT DATE: 20250203
